FAERS Safety Report 18735753 (Version 1)
Quarter: 2021Q1

REPORT INFORMATION
  Report Type: Spontaneous
  Country: US (occurrence: US)
  Receive Date: 20210108
  Receipt Date: 20210108
  Transmission Date: 20210419
  Serious: Yes (Hospitalization)
  Sender: FDA-Public Use
  Company Number: None

PATIENT
  Age: 45 Year
  Sex: Male
  Weight: 72 kg

DRUGS (1)
  1. EMPAGLIFLOZIN (EMPAGLIFOZIN 10MG TAB) [Suspect]
     Active Substance: EMPAGLIFLOZIN
     Indication: DIABETES MELLITUS
     Route: 048
     Dates: start: 20200630, end: 20200728

REACTIONS (3)
  - Euglycaemic diabetic ketoacidosis [None]
  - Treatment noncompliance [None]
  - Weight decreased [None]

NARRATIVE: CASE EVENT DATE: 20200728
